FAERS Safety Report 9302873 (Version 2)
Quarter: 2013Q2

REPORT INFORMATION
  Report Type: Spontaneous
  Country: PT (occurrence: PT)
  Receive Date: 20130522
  Receipt Date: 20130530
  Transmission Date: 20140414
  Serious: Yes (Death, Life-Threatening)
  Sender: FDA-Public Use
  Company Number: PT-ASTELLAS-2013EU004440

PATIENT
  Age: 48 Year
  Sex: Male
  Weight: 78 kg

DRUGS (8)
  1. PROGRAF [Suspect]
     Dosage: 2.25 MG, BID
     Route: 048
     Dates: end: 200808
  2. PROGRAF [Suspect]
     Dosage: 4 MG, BID
     Route: 048
     Dates: start: 200804
  3. ADVAGRAF [Suspect]
     Indication: RENAL TRANSPLANT
     Dosage: 5 MG, UID/QD
     Route: 048
     Dates: start: 201103, end: 20130214
  4. MYCOPHENOLATE MOFETIL [Concomitant]
     Indication: RENAL TRANSPLANT
     Dosage: 500 UNK, BID
     Route: 048
     Dates: end: 20120407
  5. WARFARIN [Concomitant]
     Indication: ANTICOAGULANT THERAPY
     Dosage: UNK
     Route: 048
     Dates: start: 201203, end: 20130402
  6. SIROLIMUS [Concomitant]
     Indication: RENAL TRANSPLANT
     Dosage: 1.5 MG, BID
     Route: 048
     Dates: start: 20130214
  7. SIROLIMUS [Concomitant]
     Dosage: UNK
     Route: 065
     Dates: start: 20091210, end: 201103
  8. SIROLIMUS [Concomitant]
     Dosage: UNK
     Route: 065
     Dates: start: 200808, end: 200812

REACTIONS (3)
  - Cerebral haemorrhage [Fatal]
  - Polyneuropathy [Not Recovered/Not Resolved]
  - Nephropathy toxic [Recovered/Resolved]
